FAERS Safety Report 19046239 (Version 1)
Quarter: 2021Q1

REPORT INFORMATION
  Report Type: Spontaneous
  Country: US (occurrence: US)
  Receive Date: 20210323
  Receipt Date: 20210323
  Transmission Date: 20210420
  Serious: Yes (Hospitalization)
  Sender: FDA-Public Use
  Company Number: US-CELGENEUS-USA-20210303752

PATIENT
  Age: 62 Year
  Sex: Female

DRUGS (2)
  1. ONUREG [Suspect]
     Active Substance: AZACITIDINE
     Indication: OFF LABEL USE
     Dosage: REDUCED DOSE
     Route: 048
     Dates: start: 2021
  2. ONUREG [Suspect]
     Active Substance: AZACITIDINE
     Indication: OVARIAN CANCER
     Route: 048
     Dates: start: 20210223

REACTIONS (1)
  - Gastrointestinal toxicity [Recovered/Resolved]

NARRATIVE: CASE EVENT DATE: 20210228
